FAERS Safety Report 6405138-5 (Version None)
Quarter: 2009Q4

REPORT INFORMATION
  Report Type: 
  Country: None (occurrence: None)
  Receive Date: 20091019
  Receipt Date: 20091008
  Transmission Date: 20100525
  Serious: Yes (Hospitalization)
  Sender: FDA-Public Use
  Company Number: JP-JNJFOC-20090205371

PATIENT
  Sex: Male

DRUGS (9)
  1. FINIBAX [Suspect]
     Indication: PNEUMONIA BACTERIAL
     Route: 041
  2. ZOSYN [Suspect]
     Indication: PNEUMONIA BACTERIAL
     Route: 041
  3. LIPITOR [Concomitant]
     Indication: HYPERLIPIDAEMIA
     Route: 048
  4. DIOVAN [Concomitant]
     Indication: HYPERTENSION
     Route: 048
  5. RENIVEZE [Concomitant]
     Indication: HYPERTENSION
     Route: 048
  6. METHYCOBAL [Concomitant]
     Indication: NEUROPATHY PERIPHERAL
  7. ATELEC [Concomitant]
     Indication: HYPERTENSION
     Route: 048
  8. KINEDAK [Concomitant]
     Indication: DIABETIC NEUROPATHY
     Route: 048
  9. NOVORAPID [Concomitant]
     Indication: DIABETES MELLITUS
     Route: 058

REACTIONS (1)
  - INTERSTITIAL LUNG DISEASE [None]
